FAERS Safety Report 9123479 (Version 1)
Quarter: 2013Q1

REPORT INFORMATION
  Report Type: Spontaneous
  Country: US (occurrence: US)
  Receive Date: 20130227
  Receipt Date: 20130227
  Transmission Date: 20140127
  Serious: No
  Sender: FDA-Public Use
  Company Number: US-PFIZER INC-2013067236

PATIENT
  Sex: Female

DRUGS (4)
  1. NORVASC [Suspect]
     Dosage: 2.5 MG, UNK
  2. AMLODIPINE BESILATE [Suspect]
     Dosage: UNK
  3. ALPRAZOLAM [Concomitant]
     Indication: ANXIETY
     Dosage: UNK
  4. ACETYLSALICYLIC ACID [Concomitant]
     Dosage: UNK

REACTIONS (3)
  - Chest discomfort [Unknown]
  - Dysgeusia [Unknown]
  - Dyspepsia [Unknown]
